FAERS Safety Report 4296000-5 (Version None)
Quarter: 2004Q1

REPORT INFORMATION
  Report Type: 
  Country: None (occurrence: None)
  Receive Date: 20040212
  Receipt Date: 20040203
  Transmission Date: 20041129
  Serious: Yes (Hospitalization)
  Sender: FDA-Public Use
  Company Number: 2003-10-0358

PATIENT
  Age: 57 Year
  Sex: Female
  Weight: 40 kg

DRUGS (4)
  1. CELESTAMINE TAB [Suspect]
     Indication: ASTHMA
     Dosage: 1 TABLET ORAL
     Route: 048
     Dates: start: 20031002, end: 20031002
  2. FLUTICASONE PROPIONATE [Concomitant]
  3. PRANLUKAST [Concomitant]
  4. SALBUTAMOL SULPHATE [Concomitant]

REACTIONS (1)
  - SHOCK [None]
